FAERS Safety Report 13622700 (Version 1)
Quarter: 2017Q2

REPORT INFORMATION
  Report Type: Other
  Country: GB (occurrence: NL)
  Receive Date: 20170607
  Receipt Date: 20170607
  Transmission Date: 20170830
  Serious: Yes (Death, Life-Threatening, Hospitalization, Other)
  Sender: FDA-Public Use
  Company Number: NL-INTERNATIONAL MEDICATION SYSTEMS, LIMITED-2021656

PATIENT
  Age: 40 Year
  Sex: Male

DRUGS (4)
  1. INSULIN CONTINUOUS DOSE [Concomitant]
  2. INSULIN [Concomitant]
     Active Substance: INSULIN NOS
  3. INSULIN BOLUS [Concomitant]
  4. SODIUM HYDROGENBICARBONATE 1.4% [Suspect]
     Active Substance: SODIUM BICARBONATE

REACTIONS (3)
  - Death [Fatal]
  - Cerebral ischaemia [Fatal]
  - Brain oedema [Fatal]
